FAERS Safety Report 7435389-2 (Version None)
Quarter: 2011Q2

REPORT INFORMATION
  Report Type: 
  Country: None (occurrence: None)
  Receive Date: 20110425
  Receipt Date: 20100706
  Transmission Date: 20111010
  Serious: Yes (Hospitalization, Other)
  Sender: FDA-Public Use
  Company Number: US-BAYER-200933583NA

PATIENT
  Age: 32 Year
  Sex: Female
  Weight: 55 kg

DRUGS (12)
  1. SERTRALINE [Concomitant]
     Dosage: 50 MG, CONT
     Route: 048
  2. IMITREX [Concomitant]
     Indication: MIGRAINE
     Dosage: UNK
     Dates: start: 20080601, end: 20080601
  3. ELAVIL [Concomitant]
     Indication: MIGRAINE
  4. AMOXICILLIN AND CLAVULANATE POTASSIUM [Concomitant]
     Dosage: 500 MG, TID
     Route: 048
  5. BELLADONNA AND PHENOBARBITONE [Concomitant]
     Dosage: UNK
     Route: 048
     Dates: start: 20080111
  6. PROMETHAZINE [Concomitant]
     Dosage: 12.5 MG, CONT
     Route: 048
  7. YAZ [Suspect]
     Indication: PRODUCT USED FOR UNKNOWN INDICATION
     Route: 048
     Dates: start: 20070301, end: 20080501
  8. CLORAZEPATE DIPOTASSIUM [Concomitant]
     Dosage: 3.75 MG, BID
     Route: 048
  9. INDERAL [Concomitant]
     Indication: MIGRAINE
     Dosage: UNK
     Dates: start: 20080601
  10. NEURONTIN [Concomitant]
  11. CLORAZEPATE DIPOTASSIUM [Concomitant]
     Dosage: 7 MG, BID
     Route: 048
     Dates: start: 20071003
  12. SYNTHROID [Concomitant]
     Indication: AUTOIMMUNE THYROIDITIS
     Dosage: 0.025 MG, CONT
     Route: 048

REACTIONS (15)
  - NAUSEA [None]
  - FEELING ABNORMAL [None]
  - HEADACHE [None]
  - ANGER [None]
  - BALANCE DISORDER [None]
  - HEAD INJURY [None]
  - APHASIA [None]
  - VISION BLURRED [None]
  - MIGRAINE [None]
  - ANXIETY [None]
  - VIITH NERVE PARALYSIS [None]
  - OEDEMA PERIPHERAL [None]
  - HYPERCOAGULATION [None]
  - CEREBROVASCULAR ACCIDENT [None]
  - DYSARTHRIA [None]
